FAERS Safety Report 6686339-8 (Version None)
Quarter: 2010Q2

REPORT INFORMATION
  Report Type: 
  Country: None (occurrence: None)
  Receive Date: 20100414
  Receipt Date: 20100402
  Transmission Date: 20101027
  Serious: Yes (Hospitalization)
  Sender: FDA-Public Use
  Company Number: A-US2010-35388

PATIENT
  Age: 86 Year
  Sex: Female

DRUGS (2)
  1. TRACLEER [Suspect]
     Indication: PULMONARY ARTERIAL HYPERTENSION
     Dosage: ORAL
     Route: 048
     Dates: start: 20080811
  2. REVATIO [Concomitant]

REACTIONS (4)
  - ABDOMINAL DISCOMFORT [None]
  - DECREASED APPETITE [None]
  - PNEUMONIA [None]
  - VOMITING [None]
